FAERS Safety Report 20525272 (Version 1)
Quarter: 2022Q1

REPORT INFORMATION
  Report Type: Spontaneous
  Country: JP (occurrence: JP)
  Receive Date: 20220228
  Receipt Date: 20220228
  Transmission Date: 20220424
  Serious: Yes (Other)
  Sender: FDA-Public Use
  Company Number: JP-GSKNCCC-Case-01367270_AE-52469

PATIENT
  Sex: Female

DRUGS (4)
  1. LAMICTAL [Suspect]
     Active Substance: LAMOTRIGINE
     Indication: Epilepsy
     Dosage: 100 MG, QD
     Dates: start: 201806, end: 20210428
  2. LAMICTAL [Suspect]
     Active Substance: LAMOTRIGINE
     Dosage: 50 MG M, 100 MG A
     Dates: start: 20210428, end: 20211015
  3. LAMICTAL [Suspect]
     Active Substance: LAMOTRIGINE
     Dosage: 100 MG, BID
     Dates: start: 20211015
  4. COIX SEED [Concomitant]
     Indication: Skin papilloma
     Dosage: 10 DF, BID
     Route: 048
     Dates: start: 202111

REACTIONS (6)
  - Seizure [Unknown]
  - Loss of consciousness [Unknown]
  - Skin papilloma [Unknown]
  - Anxiety [Unknown]
  - Product use issue [Unknown]
  - Prescribed overdose [Unknown]
